FAERS Safety Report 6273345-0 (Version None)
Quarter: 2009Q3

REPORT INFORMATION
  Report Type: 
  Country: None (occurrence: None)
  Receive Date: 20090715
  Receipt Date: 20080519
  Transmission Date: 20100115
  Serious: Yes (Other)
  Sender: FDA-Public Use
  Company Number: 2008US001274

PATIENT
  Age: 41 Year
  Sex: Female
  Weight: 98.4 kg

DRUGS (3)
  1. ADENOSCAN [Suspect]
     Indication: SCAN MYOCARDIAL PERFUSION
     Dosage: 26.1 MG, TOTAL DOSE, IV NOS
     Route: 042
     Dates: start: 20080502, end: 20080502
  2. PERCOCET [Concomitant]
  3. ANALGESICS [Concomitant]

REACTIONS (1)
  - DYSPNOEA [None]
